FAERS Safety Report 21654968 (Version 2)
Quarter: 2023Q1

REPORT INFORMATION
  Report Type: Report from Study
  Country: US (occurrence: US)
  Receive Date: 20221129
  Receipt Date: 20230207
  Transmission Date: 20230417
  Serious: Yes (Other)
  Sender: FDA-Public Use
  Company Number: US-ABBVIE-4164925

PATIENT
  Age: 65 Year
  Sex: Male
  Weight: 88 kg

DRUGS (25)
  1. HUMIRA [Suspect]
     Active Substance: ADALIMUMAB
     Indication: Colitis ulcerative
     Route: 058
     Dates: start: 20220628
  2. HUMIRA [Suspect]
     Active Substance: ADALIMUMAB
     Dosage: CITRATE FREE
     Route: 058
  3. HUMIRA [Suspect]
     Active Substance: ADALIMUMAB
     Route: 058
     Dates: start: 20220614
  4. HUMIRA [Suspect]
     Active Substance: ADALIMUMAB
     Dosage: LAST ADMINISTRATION DATE NOV 2021?CITRATE FREE
     Route: 058
     Dates: start: 20211112
  5. HUMIRA [Suspect]
     Active Substance: ADALIMUMAB
     Dosage: LAST ADMINISTRATION DATE DEC 2021?CITRATE FREE
     Route: 058
     Dates: start: 20211213
  6. HUMIRA [Suspect]
     Active Substance: ADALIMUMAB
     Route: 058
     Dates: start: 20220712, end: 20220726
  7. HUMIRA [Suspect]
     Active Substance: ADALIMUMAB
     Dosage: LAST ADMINISTRATION DATE FEB 2022?CITRATE FREE
     Route: 058
     Dates: start: 20220125
  8. HUMIRA [Suspect]
     Active Substance: ADALIMUMAB
     Dosage: LAST ADMINISTRATION DATE APR 2022?CITRATE FREE
     Route: 058
     Dates: start: 20220322
  9. HUMIRA [Suspect]
     Active Substance: ADALIMUMAB
     Dosage: LAST ADMINISTRATION DATE DEC 2021?CITRATE FREE
     Route: 058
     Dates: start: 20211128
  10. HUMIRA [Suspect]
     Active Substance: ADALIMUMAB
     Dosage: LAST ADMINISTRATION DATE MAR 2022?CITRATE FREE
     Route: 058
     Dates: start: 20220222
  11. HUMIRA [Suspect]
     Active Substance: ADALIMUMAB
     Route: 058
     Dates: start: 20220503
  12. HUMIRA [Suspect]
     Active Substance: ADALIMUMAB
     Route: 058
  13. HUMIRA [Suspect]
     Active Substance: ADALIMUMAB
     Dosage: LAST ADMINISTRATION DATE FEB 2022?CITRATE FREE
     Route: 058
     Dates: start: 20220208
  14. HUMIRA [Suspect]
     Active Substance: ADALIMUMAB
     Dosage: LAST ADMINISTRATION DATE JAN 2022?CITRATE FREE
     Route: 058
     Dates: start: 20211228
  15. HUMIRA [Suspect]
     Active Substance: ADALIMUMAB
     Route: 058
     Dates: start: 20220405
  16. HUMIRA [Suspect]
     Active Substance: ADALIMUMAB
     Dosage: LAST ADMINISTRATION DATE MAR 2022?CITRATE FREE
     Route: 058
     Dates: start: 20220308
  17. HUMIRA [Suspect]
     Active Substance: ADALIMUMAB
     Route: 058
     Dates: start: 20220531
  18. HUMIRA [Suspect]
     Active Substance: ADALIMUMAB
     Route: 058
     Dates: start: 20220517
  19. HUMIRA [Suspect]
     Active Substance: ADALIMUMAB
     Dosage: LAST ADMINISTRATION DATE JAN 2022?CITRATE FREE
     Route: 058
     Dates: start: 20220111
  20. HUMIRA [Suspect]
     Active Substance: ADALIMUMAB
     Route: 058
     Dates: start: 20220419
  21. METOPROLOL [Concomitant]
     Active Substance: METOPROLOL
     Indication: Product used for unknown indication
     Route: 048
     Dates: start: 20181111
  22. MODERNA COVID-19 VACCINE [Suspect]
     Active Substance: ELASOMERAN
     Indication: COVID-19 immunisation
     Dosage: ONE IN ONCE?FIRST DOSE
     Route: 030
     Dates: start: 20210202, end: 20210202
  23. MODERNA COVID-19 VACCINE [Suspect]
     Active Substance: ELASOMERAN
     Indication: COVID-19 immunisation
     Dosage: ONE IN ONCE?SECOND DOSE
     Route: 030
     Dates: start: 20210320, end: 20210320
  24. MODERNA COVID-19 VACCINE [Suspect]
     Active Substance: ELASOMERAN
     Indication: COVID-19 immunisation
     Dosage: ONE IN ONCE?THIRD DOSE
     Route: 030
     Dates: start: 20210820, end: 20210820
  25. PROBIOTICS NOS [Concomitant]
     Active Substance: PROBIOTICS NOS
     Indication: Product used for unknown indication

REACTIONS (8)
  - Adverse drug reaction [Recovered/Resolved]
  - Injection site inflammation [Recovered/Resolved]
  - Immunisation reaction [Unknown]
  - Injection site rash [Unknown]
  - Device issue [Unknown]
  - Injection site inflammation [Unknown]
  - Injection site inflammation [Recovered/Resolved]
  - Injection site inflammation [Recovered/Resolved]

NARRATIVE: CASE EVENT DATE: 20220405
